FAERS Safety Report 5474078-0 (Version None)
Quarter: 2007Q4

REPORT INFORMATION
  Report Type: 
  Country: None (occurrence: None)
  Receive Date: 20071002
  Receipt Date: 20070927
  Transmission Date: 20080405
  Serious: Yes (Death)
  Sender: FDA-Public Use
  Company Number: PHNU2007DE02362

PATIENT
  Sex: Male

DRUGS (13)
  1. MYFORTIC [Suspect]
     Indication: HEART TRANSPLANT
     Dosage: 500 MG, BID
     Route: 065
  2. MAGNESIUM SULFATE [Suspect]
  3. DECORTIN [Concomitant]
     Dosage: 5 MG, QD
  4. CERTICAN [Concomitant]
     Dosage: 0.5 MG, QD
  5. INSPRA [Concomitant]
  6. TORSEMIDE [Concomitant]
  7. AQUAPHOR [Concomitant]
  8. ASPIRIN [Concomitant]
     Dosage: 100 MG, QD
     Route: 048
  9. ZOCOR [Concomitant]
     Dosage: 20 MG, QD
     Route: 048
  10. KALIUM [Concomitant]
  11. METOPROLOL SUCCINATE [Concomitant]
  12. ALLOPURINOL [Concomitant]
  13. VIGANTOLETTEN [Concomitant]

REACTIONS (3)
  - DEATH [None]
  - DRUG INTERACTION [None]
  - DRUG LEVEL FLUCTUATING [None]
